FAERS Safety Report 12480024 (Version 1)
Quarter: 2016Q2

REPORT INFORMATION
  Report Type: Spontaneous
  Country: US (occurrence: None)
  Receive Date: 20160617
  Receipt Date: 20160617
  Transmission Date: 20160815
  Serious: No
  Sender: FDA-Public Use
  Company Number: None

PATIENT
  Sex: Female

DRUGS (2)
  1. HUMULIN R [Suspect]
     Active Substance: INSULIN HUMAN
  2. METFORMIN [Suspect]
     Active Substance: METFORMIN HYDROCHLORIDE

REACTIONS (6)
  - Weight increased [None]
  - Fall [None]
  - Intervertebral disc protrusion [None]
  - Glycosylated haemoglobin increased [None]
  - Decreased activity [None]
  - Blood glucose increased [None]
